FAERS Safety Report 8383385-3 (Version None)
Quarter: 2012Q2

REPORT INFORMATION
  Report Type: 
  Country: None (occurrence: None)
  Receive Date: 20120524
  Receipt Date: 20120522
  Transmission Date: 20120825
  Serious: Yes (Life-Threatening, Hospitalization)
  Sender: FDA-Public Use
  Company Number: NL-GENZYME-CLOF-1002039

PATIENT
  Sex: Female
  Weight: 65 kg

DRUGS (3)
  1. CYTARABINE [Suspect]
     Indication: ACUTE MYELOID LEUKAEMIA
     Dosage: 1770 MG, BID
     Route: 042
     Dates: start: 20120114, end: 20120119
  2. AMSACRINE [Suspect]
     Indication: ACUTE MYELOID LEUKAEMIA
     Dosage: 212 MG, QDX3; DAYS 4, 5, AND 6
     Route: 042
     Dates: start: 20120117, end: 20120119
  3. CLOFARABINE [Suspect]
     Indication: ACUTE MYELOID LEUKAEMIA
     Dosage: 17.7 MG, QDX5; DAYS 1-5
     Route: 042
     Dates: start: 20120114, end: 20120118

REACTIONS (2)
  - SEPSIS [None]
  - HAEMORRHAGE INTRACRANIAL [None]
